FAERS Safety Report 9200113 (Version 1)
Quarter: 2013Q1

REPORT INFORMATION
  Report Type: Report from Study
  Country: JP (occurrence: JP)
  Receive Date: 20130329
  Receipt Date: 20130329
  Transmission Date: 20140127
  Serious: Yes (Death)
  Sender: FDA-Public Use
  Company Number: JP-CUBIST PHARMACEUTICAL, INC.-2013CBST000279

PATIENT
  Age: 69 Year
  Sex: Male

DRUGS (5)
  1. CUBICIN [Suspect]
     Indication: FEBRILE NEUTROPENIA
     Dosage: 6 MG/KG, QD
     Route: 041
     Dates: start: 20121225, end: 20130108
  2. CUBICIN [Suspect]
     Indication: OFF LABEL USE
  3. TIENAM [Concomitant]
     Indication: FEBRILE NEUTROPENIA
     Dosage: 1.5 G, QD
     Dates: start: 20121217, end: 20121227
  4. MEROPEN                            /01250501/ [Concomitant]
     Indication: FEBRILE NEUTROPENIA
     Dosage: 1.5 G, QD
     Route: 051
     Dates: start: 20121228, end: 20130108
  5. AMBISOME [Concomitant]
     Indication: BRONCHOPULMONARY ASPERGILLOSIS
     Dosage: 250 MG, UNK
     Route: 051
     Dates: start: 20121218, end: 20130108

REACTIONS (2)
  - Disease progression [Fatal]
  - Febrile neutropenia [None]
